FAERS Safety Report 20103802 (Version 1)
Quarter: 2021Q4

REPORT INFORMATION
  Report Type: Spontaneous
  Country: US (occurrence: US)
  Receive Date: 20211123
  Receipt Date: 20211123
  Transmission Date: 20220303
  Serious: No
  Sender: FDA-Public Use
  Company Number: US-AMNEAL PHARMACEUTICALS-2021-AMRX-01045

PATIENT
  Sex: Male

DRUGS (3)
  1. ISOTRETINOIN [Suspect]
     Active Substance: ISOTRETINOIN
     Indication: Acne
     Dosage: UNK
     Route: 048
     Dates: start: 20191113, end: 20201123
  2. CLARAVIS [Suspect]
     Active Substance: ISOTRETINOIN
     Indication: Acne
     Dosage: UNK
     Route: 048
  3. MYORISAN [Concomitant]
     Active Substance: ISOTRETINOIN
     Indication: Acne
     Dosage: UNK
     Route: 048

REACTIONS (2)
  - Xerosis [Recovered/Resolved]
  - Cheilitis [Recovered/Resolved]
